FAERS Safety Report 5518153-0 (Version None)
Quarter: 2007Q4

REPORT INFORMATION
  Report Type: 
  Country: None (occurrence: None)
  Receive Date: 20071113
  Receipt Date: 20071113
  Transmission Date: 20080405
  Serious: Yes (Hospitalization, Disabling)
  Sender: FDA-Public Use
  Company Number: None

PATIENT
  Age: 58 Year
  Sex: Female
  Weight: 58.9676 kg

DRUGS (12)
  1. CHANTIX [Suspect]
     Indication: SMOKING CESSATION THERAPY
     Dosage: ONE BID ORALLY
     Route: 048
     Dates: start: 20070521
  2. CHANTIX [Suspect]
     Indication: SMOKING CESSATION THERAPY
     Dosage: ONE BID ORALLY
     Route: 048
     Dates: start: 20070618
  3. LISINOPRIL [Concomitant]
  4. OMACOR [Concomitant]
  5. CRESTOR [Concomitant]
  6. CLONIDINE [Concomitant]
  7. TOPROL-XL [Concomitant]
  8. MULTI-VITAMIN [Concomitant]
  9. COSAMIN DS [Concomitant]
  10. XANAX [Concomitant]
  11. TRANXENE [Concomitant]
  12. LEXAPRO [Concomitant]

REACTIONS (7)
  - AGGRESSION [None]
  - HOSTILITY [None]
  - IRRITABILITY [None]
  - MYOCARDIAL INFARCTION [None]
  - PANIC ATTACK [None]
  - PARANOIA [None]
  - WEIGHT DECREASED [None]
